FAERS Safety Report 5188274-3 (Version None)
Quarter: 2006Q4

REPORT INFORMATION
  Report Type: 
  Country: None (occurrence: None)
  Receive Date: 20061221
  Receipt Date: 20061212
  Transmission Date: 20070319
  Serious: Yes (Hospitalization)
  Sender: FDA-Public Use
  Company Number: FR-GLAXOSMITHKLINE-B0450467A

PATIENT
  Age: 44 Year
  Sex: Female

DRUGS (10)
  1. EPIVIR [Suspect]
     Indication: HIV INFECTION
     Dosage: 1UNIT PER DAY
     Route: 048
     Dates: start: 20050726
  2. KALETRA [Suspect]
     Indication: HIV INFECTION
     Route: 048
     Dates: start: 20050726
  3. VIDEX [Suspect]
     Indication: HIV INFECTION
     Dosage: 1UNIT PER DAY
     Route: 048
     Dates: start: 20050726
  4. PYRIMETHAMINE TAB [Suspect]
     Indication: CEREBRAL TOXOPLASMOSIS
     Dosage: 50MG PER DAY
     Route: 048
     Dates: start: 20050624, end: 20060909
  5. DEPAKENE [Suspect]
     Indication: EPILEPSY
     Dosage: 500MG PER DAY
     Route: 048
  6. SULFADIAZINE [Suspect]
     Indication: CEREBRAL TOXOPLASMOSIS
     Dosage: 500MG TWICE PER DAY
     Route: 048
     Dates: start: 20050624, end: 20060909
  7. BACTRIM [Concomitant]
     Route: 042
  8. ZECLAR [Concomitant]
     Route: 065
  9. MINOCYCLIN [Concomitant]
     Route: 065
  10. NORVIR [Concomitant]
     Indication: HIV INFECTION
     Route: 065
     Dates: start: 20050726

REACTIONS (9)
  - ANAEMIA [None]
  - CEREBRAL TOXOPLASMOSIS [None]
  - CONVULSION [None]
  - DYSPHAGIA [None]
  - GAIT DISTURBANCE [None]
  - LEUKOPENIA [None]
  - NEUTROPENIA [None]
  - PANCYTOPENIA [None]
  - THROMBOCYTOPENIA [None]
